FAERS Safety Report 6645274-1 (Version None)
Quarter: 2010Q1

REPORT INFORMATION
  Report Type: 
  Country: None (occurrence: None)
  Receive Date: 20100322
  Receipt Date: 20100315
  Transmission Date: 20100710
  Serious: Yes (Hospitalization, Other)
  Sender: FDA-Public Use
  Company Number: PHHO2009JP01244

PATIENT
  Sex: Male
  Weight: 64 kg

DRUGS (24)
  1. NEORAL [Suspect]
     Indication: RENAL TRANSPLANT
     Dosage: 200 MG, BID
     Route: 048
     Dates: start: 20081221
  2. NEORAL [Suspect]
     Dosage: 150 MG IN TWO DIVIDED DOSES DAILY
     Dates: start: 20090925
  3. NEORAL [Suspect]
     Dosage: 100 MG INTO TWO DIVIDED DOSES DAILY
     Dates: start: 20091225
  4. NEORAL [Suspect]
     Dosage: 150MG IN TWO DIVIDED DOSES DAILY
     Dates: start: 20100303
  5. MYCOPHENOLATE MOFETIL [Suspect]
     Indication: RENAL TRANSPLANT
     Dosage: 2 G DAILY
     Route: 048
     Dates: start: 20081216, end: 20090119
  6. MYCOPHENOLATE MOFETIL [Suspect]
     Dosage: 1 G DAILY
     Route: 048
     Dates: start: 20090120, end: 20090124
  7. MYCOPHENOLATE MOFETIL [Suspect]
     Dosage: 0.5 G DAILY
     Route: 048
     Dates: start: 20090125, end: 20090204
  8. MYCOPHENOLATE MOFETIL [Suspect]
     Dosage: 0.5G DAILY
     Route: 048
     Dates: start: 20090221, end: 20090316
  9. MYCOPHENOLATE MOFETIL [Suspect]
     Dosage: 250 MG DAILY
     Route: 048
     Dates: start: 20090508
  10. MYCOPHENOLATE MOFETIL [Suspect]
     Dosage: 500 MG DAILY
     Route: 048
     Dates: start: 20090627
  11. MYCOPHENOLATE MOFETIL [Suspect]
     Dosage: 1000MG INTO TWO DIVIDED DOSES DAILY
     Dates: start: 20100219
  12. MEDROL [Suspect]
     Indication: RENAL TRANSPLANT
     Dosage: 8 MG, QD
     Dates: start: 20081220
  13. NEUER [Concomitant]
  14. ALLOID [Concomitant]
  15. ALFAROL [Concomitant]
  16. LANSOPRAZOLE [Concomitant]
  17. COTRIM [Concomitant]
  18. ZOVIRAX [Concomitant]
  19. ISODINE [Concomitant]
  20. FUNGIZONE [Concomitant]
  21. BENAMBAX [Concomitant]
  22. DISTILLED WATER [Concomitant]
  23. LIPITOR [Concomitant]
  24. ACUATIM [Concomitant]

REACTIONS (5)
  - CYTOMEGALOVIRUS INFECTION [None]
  - PYELOCALIECTASIS [None]
  - RENAL FUNCTION TEST ABNORMAL [None]
  - URETERIC ANASTOMOSIS COMPLICATION [None]
  - URETERIC DILATATION [None]
